FAERS Safety Report 26048027 (Version 1)
Quarter: 2025Q4

REPORT INFORMATION
  Report Type: Spontaneous
  Country: US (occurrence: None)
  Receive Date: 20251114
  Receipt Date: 20251114
  Transmission Date: 20260117
  Serious: Yes (Hospitalization)
  Sender: FDA-CTU
  Company Number: None

PATIENT
  Sex: Female

DRUGS (2)
  1. COLISTIMETHATE SODIUM [Suspect]
     Active Substance: COLISTIMETHATE SODIUM
     Indication: Bronchiectasis
     Dosage: 75 MG  RESPIRTORY (INHALATION)??
     Route: 055
     Dates: start: 20251021
  2. TOBRAMYCIN [Suspect]
     Active Substance: TOBRAMYCIN
     Indication: Bronchiectasis
     Dosage: 300 MG  RESPIRATORY (INHALATION)??OTHER FREQUENCY : SEE EVENT;?
     Route: 055
     Dates: start: 20231012

REACTIONS (1)
  - Lung disorder [None]
